FAERS Safety Report 19193989 (Version 1)
Quarter: 2021Q2

REPORT INFORMATION
  Report Type: Spontaneous
  Country: US (occurrence: US)
  Receive Date: 20210429
  Receipt Date: 20210429
  Transmission Date: 20210717
  Serious: Yes (Disabling)
  Sender: FDA-Public Use
  Company Number: None

PATIENT
  Age: 49 Year
  Sex: Female
  Weight: 72 kg

DRUGS (3)
  1. TYLENOL [Concomitant]
     Active Substance: ACETAMINOPHEN
  2. CIPRO [Suspect]
     Active Substance: CIPROFLOXACIN HYDROCHLORIDE
     Indication: URINARY TRACT INFECTION
     Route: 048
  3. ADVIL [Concomitant]
     Active Substance: IBUPROFEN

REACTIONS (11)
  - Headache [None]
  - Nervous system disorder [None]
  - Tendon disorder [None]
  - Muscle disorder [None]
  - Arthropathy [None]
  - Tendon pain [None]
  - Pain [None]
  - Ear disorder [None]
  - Fatigue [None]
  - Cardiac disorder [None]
  - Eye disorder [None]

NARRATIVE: CASE EVENT DATE: 20170715
